FAERS Safety Report 6895441-7 (Version None)
Quarter: 2010Q3

REPORT INFORMATION
  Report Type: 
  Country: None (occurrence: None)
  Receive Date: 20100730
  Receipt Date: 20100730
  Transmission Date: 20110219
  Serious: No
  Sender: FDA-Public Use
  Company Number: None

PATIENT

DRUGS (1)
  1. FENTANYL CITRATE [Suspect]

REACTIONS (9)
  - FALL [None]
  - GAIT DISTURBANCE [None]
  - IMPAIRED DRIVING ABILITY [None]
  - MUSCLE INJURY [None]
  - NERVE INJURY [None]
  - PAIN [None]
  - PARALYSIS [None]
  - PERONEAL NERVE PALSY [None]
  - WRONG TECHNIQUE IN DRUG USAGE PROCESS [None]
